FAERS Safety Report 13630623 (Version 1)
Quarter: 2017Q2

REPORT INFORMATION
  Report Type: Spontaneous
  Country: US (occurrence: US)
  Receive Date: 20170531
  Receipt Date: 20170531
  Transmission Date: 20170830
  Serious: No
  Sender: FDA-Public Use
  Company Number: US-ASTELLAS-1315417

PATIENT
  Sex: Female

DRUGS (12)
  1. PANTOPRAZOLE [Concomitant]
     Active Substance: PANTOPRAZOLE
  2. LUTEIN [Concomitant]
     Active Substance: LUTEIN
  3. PREDNISONE. [Concomitant]
     Active Substance: PREDNISONE
  4. FOLIC ACID. [Concomitant]
     Active Substance: FOLIC ACID
  5. LEVOTHYROXINE. [Concomitant]
     Active Substance: LEVOTHYROXINE
  6. ASPIRIN. [Concomitant]
     Active Substance: ASPIRIN
  7. CELEBREX [Concomitant]
     Active Substance: CELECOXIB
  8. LOSARTAN. [Concomitant]
     Active Substance: LOSARTAN
  9. VITAMIN D3 [Concomitant]
     Active Substance: CHOLECALCIFEROL
  10. TARCEVA [Suspect]
     Active Substance: ERLOTINIB HYDROCHLORIDE
     Indication: BREAST CANCER
     Route: 048
     Dates: start: 20130508
  11. SIMVASTATIN. [Concomitant]
     Active Substance: SIMVASTATIN
  12. CITRACAL + D [Concomitant]
     Active Substance: CALCIUM CITRATE\VITAMIN D

REACTIONS (3)
  - Constipation [Unknown]
  - Dysgeusia [Unknown]
  - Diarrhoea [Unknown]
